FAERS Safety Report 24051417 (Version 3)
Quarter: 2024Q4

REPORT INFORMATION
  Report Type: Spontaneous
  Country: JP (occurrence: JP)
  Receive Date: 20240704
  Receipt Date: 20241021
  Transmission Date: 20250115
  Serious: No
  Sender: PFIZER
  Company Number: JP-PFIZER INC-PV202400075442

PATIENT
  Age: 10 Year
  Sex: Female
  Weight: 27.75 kg

DRUGS (4)
  1. NGENLA [Suspect]
     Active Substance: SOMATROGON-GHLA
     Indication: Growth hormone deficiency
     Dosage: 18 MG, WEEKLY
     Route: 058
     Dates: start: 20230629, end: 20231214
  2. NGENLA [Suspect]
     Active Substance: SOMATROGON-GHLA
     Indication: Dwarfism
  3. WIDECILLIN [AMOXICILLIN TRIHYDRATE] [Concomitant]
     Indication: Nasopharyngitis
     Dosage: UNK
     Route: 048
  4. BEPOTASTINE BESYLATE [Concomitant]
     Active Substance: BEPOTASTINE BESYLATE
     Dosage: UNK
     Route: 048

REACTIONS (4)
  - Injection site swelling [Recovered/Resolved]
  - Injection site erythema [Recovered/Resolved]
  - Injection site pain [Recovered/Resolved]
  - Injection site pruritus [Recovering/Resolving]

NARRATIVE: CASE EVENT DATE: 20231001
